FAERS Safety Report 7007167-X (Version None)
Quarter: 2010Q2

REPORT INFORMATION
  Report Type: 
  Country: None (occurrence: None)
  Receive Date: 20100225
  Receipt Date: 20091125
  Transmission Date: 20101027
  Serious: No
  Sender: FDA-Public Use
  Company Number: US-JNJFOC-20091200330

PATIENT
  Age: 7 Year
  Sex: Female
  Weight: 24.9478 kg

DRUGS (5)
  1. CHILDREN'S MOTRIN [Suspect]
     Indication: HEADACHE
     Dosage: 100 MG, IN 1 TOTAL, ORAL
     Route: 048
     Dates: start: 20091124, end: 20091124
  2. CHILDREN'S MOTRIN [Suspect]
     Indication: PYREXIA
     Dosage: 100 MG, IN 1 TOTAL, ORAL
     Route: 048
     Dates: start: 20091124, end: 20091124
  3. CHILDREN'S TYLENOL SUSPENSION [Suspect]
     Indication: HEADACHE
     Dosage: IN 1 TOTAL, ORAL
     Route: 048
     Dates: start: 20091124, end: 20091124
  4. CHILDREN'S TYLENOL SUSPENSION [Suspect]
     Indication: PYREXIA
     Dosage: IN 1 TOTAL, ORAL
     Route: 048
     Dates: start: 20091124, end: 20091124
  5. MULTIVITAMIN [Concomitant]

REACTIONS (1)
  - LIP SWELLING [None]
